FAERS Safety Report 4686177-1 (Version None)
Quarter: 2005Q2

REPORT INFORMATION
  Report Type: 
  Country: None (occurrence: None)
  Receive Date: 20050609
  Receipt Date: 20050601
  Transmission Date: 20051028
  Serious: Yes (Other)
  Sender: FDA-Public Use
  Company Number: NL-BOEHRINGER INGELHEIM PHARMACEUTICALS, INC.-2005-NL-00145NL

PATIENT
  Sex: Female
  Weight: 75 kg

DRUGS (2)
  1. MOVICOX 15 MG TABLETS [Suspect]
     Indication: TENOSYNOVITIS
     Dates: start: 20050101
  2. NUVARING RING VAGINAL [Suspect]
     Indication: CONTRACEPTION
     Route: 067
     Dates: start: 20040101

REACTIONS (2)
  - DRUG INTERACTION [None]
  - UNINTENDED PREGNANCY [None]
